FAERS Safety Report 7513795-5 (Version None)
Quarter: 2011Q2

REPORT INFORMATION
  Report Type: 
  Country: None (occurrence: None)
  Receive Date: 20110531
  Receipt Date: 20110525
  Transmission Date: 20111010
  Serious: Yes (Death, Hospitalization)
  Sender: FDA-Public Use
  Company Number: PHHY2011NO44694

PATIENT
  Sex: Male

DRUGS (12)
  1. RENITEC COMP [Concomitant]
     Indication: CARDIAC FAILURE
     Dosage: 1 DF, QD
     Route: 048
  2. ALBYL-E [Concomitant]
     Dosage: 75 MG, QD
     Route: 048
  3. METFORMIN HCL [Suspect]
     Indication: DIABETES MELLITUS
     Dosage: 850 MG, TID
     Route: 048
  4. INSULIN HUMAN [Concomitant]
     Indication: DIABETES MELLITUS
     Dosage: 6 IU, QD, IN THE MORNING
     Route: 058
  5. DUROFERON [Concomitant]
     Indication: MINERAL SUPPLEMENTATION
     Dosage: 100 MG, BID
     Route: 048
  6. PARACET [Concomitant]
     Route: 048
  7. NYCOPLUS MAGNESIUM [Concomitant]
     Indication: MINERAL SUPPLEMENTATION
     Dosage: 120 MG, QD
     Route: 048
  8. CALCIGRAN FORTE [Concomitant]
     Dosage: UNK
     Route: 048
  9. DIURAL [Concomitant]
     Indication: CARDIAC FAILURE
     Dosage: 20 MG, QD
     Route: 048
  10. PANTOPRAZOLE [Concomitant]
     Indication: GASTRODUODENITIS
     Dosage: 20 MG, QD
     Route: 048
  11. DUPHALAC [Concomitant]
     Dosage: UNK
     Route: 048
  12. LERCANIDIPINE [Concomitant]
     Indication: HYPERTENSION
     Dosage: 10 MG, QD
     Route: 048

REACTIONS (6)
  - RENAL FAILURE [None]
  - BLOOD CREATININE INCREASED [None]
  - LACTIC ACIDOSIS [None]
  - DEHYDRATION [None]
  - ANAEMIA [None]
  - HYPOTENSION [None]
